FAERS Safety Report 15371319 (Version 1)
Quarter: 2018Q3

REPORT INFORMATION
  Report Type: Spontaneous
  Country: US (occurrence: US)
  Receive Date: 20180905
  Receipt Date: 20180905
  Transmission Date: 20181010
  Serious: Yes (Other)
  Sender: FDA-Public Use
  Company Number: None

PATIENT
  Age: 81 Year
  Sex: Female
  Weight: 49.05 kg

DRUGS (11)
  1. ASPIRIN. [Concomitant]
     Active Substance: ASPIRIN
  2. LEVOTHYROXINE. [Concomitant]
     Active Substance: LEVOTHYROXINE
  3. CALCIUM 600 [Concomitant]
  4. PRILOSEC [Concomitant]
     Active Substance: OMEPRAZOLE MAGNESIUM
  5. ATORVASTATIN [Concomitant]
     Active Substance: ATORVASTATIN
  6. ESSENTIAL MAGNESIUM [Concomitant]
  7. KISQALI FEMARA CO?PACK [Suspect]
     Active Substance: LETROZOLE\RIBOCICLIB
     Indication: BREAST CANCER
     Route: 048
     Dates: start: 20180723
  8. BIOTIN [Concomitant]
     Active Substance: BIOTIN
  9. VITAMIN D [Concomitant]
     Active Substance: CHOLECALCIFEROL
  10. POTASSIUM [Concomitant]
     Active Substance: POTASSIUM
  11. VITAMIN B12 [Concomitant]
     Active Substance: CYANOCOBALAMIN

REACTIONS (1)
  - Transient ischaemic attack [None]

NARRATIVE: CASE EVENT DATE: 20180831
